FAERS Safety Report 24534574 (Version 1)
Quarter: 2024Q4

REPORT INFORMATION
  Report Type: Spontaneous
  Country: GB (occurrence: GB)
  Receive Date: 20241022
  Receipt Date: 20241022
  Transmission Date: 20250115
  Serious: Yes (Other)
  Sender: TEVA
  Company Number: GB-MHRA-TPP21429734C10308259YC1729275987309

PATIENT
  Age: 64 Year
  Sex: Male
  Weight: 118 kg

DRUGS (19)
  1. ATORVASTATIN [Suspect]
     Active Substance: ATORVASTATIN
     Dosage: AT NIGHT
     Route: 065
     Dates: start: 20240807, end: 20241008
  2. BECLOMETHASONE DIPROPIONATE [Concomitant]
     Active Substance: BECLOMETHASONE DIPROPIONATE
     Dosage: PUFF
     Route: 055
     Dates: start: 20240611
  3. ASPIRIN [Concomitant]
     Active Substance: ASPIRIN
     Dates: start: 20240611
  4. ALBUTEROL [Concomitant]
     Active Substance: ALBUTEROL
     Dosage: AS DIRECTED
     Dates: start: 20240611
  5. EXOREX [Concomitant]
     Active Substance: COAL TAR
     Dosage: APPLY 2-3 TIMES/DAY TO AFFECTED AREA
     Dates: start: 20240611
  6. COLCHICINE [Concomitant]
     Active Substance: COLCHICINE
     Indication: Gout
     Dosage: TAKE TWO TO FOUR TIME...
     Dates: start: 20240611
  7. BISOPROLOL [Concomitant]
     Active Substance: BISOPROLOL\BISOPROLOL FUMARATE
     Dates: start: 20240611
  8. AMLODIPINE [Concomitant]
     Active Substance: AMLODIPINE BESYLATE
     Dates: start: 20240611
  9. DOXAZOSIN [Concomitant]
     Active Substance: DOXAZOSIN\DOXAZOSIN MESYLATE
     Dates: start: 20240611
  10. FEBUXOSTAT [Concomitant]
     Active Substance: FEBUXOSTAT
     Indication: Gout
     Dosage: TO PREVENT GOUT COMING ON
     Dates: start: 20240611
  11. ACETAMINOPHEN [Concomitant]
     Active Substance: ACETAMINOPHEN
     Dosage: TAKE 1-2 UP TO FOUR TIMES DAILY AS REQUIRED (MA...
     Dates: start: 20240611
  12. LANSOPRAZOLE [Concomitant]
     Active Substance: LANSOPRAZOLE
     Dates: start: 20240611
  13. ROSUVASTATIN [Concomitant]
     Active Substance: ROSUVASTATIN
  14. MORPHINE SULFATE [Concomitant]
     Active Substance: MORPHINE SULFATE
     Dosage: EVERY 6 HOURS AS NEEDED AS PART OF REDUCIN...
     Dates: start: 20240611
  15. MONTELUKAST [Concomitant]
     Active Substance: MONTELUKAST
     Dates: start: 20240611
  16. SALMETEROL [Concomitant]
     Active Substance: SALMETEROL
     Dosage: PUFFS
     Route: 055
     Dates: start: 20240611
  17. CETIRIZINE [Concomitant]
     Active Substance: CETIRIZINE HYDROCHLORIDE
     Indication: Ill-defined disorder
     Dosage: TPP YC - PLEASE RECLASSIFY
     Dates: start: 20240611
  18. CHOLECALCIFEROL [Concomitant]
     Active Substance: CHOLECALCIFEROL
     Dosage: VITAMIN D
     Dates: start: 20240611
  19. CALCIPOTRIENE [Concomitant]
     Active Substance: CALCIPOTRIENE
     Dosage: APPLY ONCE DAILY
     Dates: start: 20240611

REACTIONS (1)
  - Vomiting [Recovered/Resolved]
